FAERS Safety Report 12076488 (Version 13)
Quarter: 2017Q1

REPORT INFORMATION
  Report Type: Report from Study
  Country: US (occurrence: US)
  Receive Date: 20160215
  Receipt Date: 20170117
  Transmission Date: 20170428
  Serious: Yes (Hospitalization, Other)
  Sender: FDA-Public Use
  Company Number: PHHO2016US002014

PATIENT
  Age: 12 Year
  Sex: Male
  Weight: 38.9 kg

DRUGS (29)
  1. TOBI PODHALER [Suspect]
     Active Substance: TOBRAMYCIN
     Indication: PNEUMONIA
     Dosage: 300 MG, BID
     Route: 055
     Dates: start: 20160101, end: 20160128
  2. AZTREONAM. [Suspect]
     Active Substance: AZTREONAM
     Indication: PRODUCT USED FOR UNKNOWN INDICATION
     Dosage: 75 MG, TID
     Route: 055
     Dates: start: 20160201, end: 20160204
  3. FLUTICASONE. [Concomitant]
     Active Substance: FLUTICASONE
     Indication: PROPHYLAXIS
     Dosage: 2 DF (2 PUFF), BID
     Route: 055
     Dates: start: 20160229
  4. HYPERSAL [Concomitant]
     Dosage: 4 ML, BID
     Route: 055
     Dates: start: 20160817
  5. HYPERSAL [Concomitant]
     Dosage: 4 ML, BID
     Route: 055
     Dates: start: 20160915
  6. ALBUTEROL HFA [Concomitant]
     Active Substance: ALBUTEROL SULFATE
     Dosage: 2.5 MG, BID
     Route: 055
     Dates: start: 20160915
  7. ALBUTEROL HFA [Concomitant]
     Active Substance: ALBUTEROL SULFATE
     Dosage: 2.5 MG, BID
     Route: 055
     Dates: start: 20161214
  8. TOBI PODHALER [Suspect]
     Active Substance: TOBRAMYCIN
     Indication: INFECTIVE PULMONARY EXACERBATION OF CYSTIC FIBROSIS
     Dosage: 300 MG, BID (TREATMENT TEMPORARILY INTERRUPTED ON 13 JUL 2016)
     Route: 055
     Dates: start: 20160701
  9. HYPERSAL [Concomitant]
     Dosage: 4 ML, BID
     Route: 055
     Dates: start: 20161214
  10. TOBI PODHALER [Suspect]
     Active Substance: TOBRAMYCIN
     Indication: HAEMOPTYSIS
     Dosage: 300 MG, BID
     Route: 055
     Dates: start: 20160727
  11. HYPERSAL [Concomitant]
     Dosage: UNK
     Route: 065
     Dates: start: 20160818
  12. ALBUTEROL HFA [Concomitant]
     Active Substance: ALBUTEROL SULFATE
     Indication: DYSPNOEA
     Dosage: 2.5 MG, QID
     Route: 055
     Dates: start: 20160713
  13. ALBUTEROL HFA [Concomitant]
     Active Substance: ALBUTEROL SULFATE
     Indication: PROPHYLAXIS
     Dosage: 2.5 MG, BID
     Route: 055
     Dates: start: 20160818
  14. DORNASE ALFA [Concomitant]
     Active Substance: DORNASE ALFA
     Indication: PROPHYLAXIS
     Dosage: 2.5 MG, QD
     Route: 055
     Dates: start: 20160713
  15. TOBI PODHALER [Suspect]
     Active Substance: TOBRAMYCIN
     Dosage: 300 MG, BID
     Route: 055
     Dates: start: 20160817
  16. TOBI PODHALER [Suspect]
     Active Substance: TOBRAMYCIN
     Dosage: 300 MG, BID
     Route: 055
     Dates: start: 20161001, end: 20161028
  17. CAYSTON [Suspect]
     Active Substance: AZTREONAM
     Indication: PRODUCT USED FOR UNKNOWN INDICATION
     Route: 065
  18. COLISTIN [Suspect]
     Active Substance: COLISTIN
     Dosage: 150 MG, BID
     Route: 055
     Dates: start: 20161212, end: 20161214
  19. DORNASE ALFA [Concomitant]
     Active Substance: DORNASE ALFA
     Dosage: 2.5 MG, QD
     Route: 055
     Dates: start: 20160819
  20. AZTREONAM. [Suspect]
     Active Substance: AZTREONAM
     Dosage: 75 MG, UNK
     Route: 055
     Dates: start: 20160601, end: 20160628
  21. AZTREONAM. [Suspect]
     Active Substance: AZTREONAM
     Dosage: 75 MG, TID
     Route: 055
     Dates: start: 20160628, end: 20160817
  22. COLISTIN [Suspect]
     Active Substance: COLISTIN
     Dosage: 150 MG, BID
     Route: 055
     Dates: start: 20160915
  23. COLISTIN [Suspect]
     Active Substance: COLISTIN
     Indication: PRODUCT USED FOR UNKNOWN INDICATION
     Dosage: 150 MG, BID
     Route: 055
     Dates: start: 20160901
  24. HYPERSAL [Concomitant]
     Dosage: DOSE INCREASED
     Route: 055
     Dates: start: 20161208
  25. ALBUTEROL HFA [Concomitant]
     Active Substance: ALBUTEROL SULFATE
     Indication: WHEEZING
     Dosage: 1 OT (2 PUFF), PRN
     Route: 055
     Dates: start: 20160713
  26. DORNASE ALFA [Concomitant]
     Active Substance: DORNASE ALFA
     Dosage: 2.5 MG, QD
     Route: 055
     Dates: start: 20160817
  27. COLISTIN [Suspect]
     Active Substance: COLISTIN
     Dosage: 150 MG, BID
     Route: 055
     Dates: start: 20170103
  28. HYPERSAL [Concomitant]
     Indication: PROPHYLAXIS
     Dosage: 4 ML, BID
     Route: 055
     Dates: start: 20160229
  29. DORNASE ALFA [Concomitant]
     Active Substance: DORNASE ALFA
     Dosage: UNK
     Route: 065
     Dates: start: 20160818

REACTIONS (42)
  - Haemoptysis [Recovered/Resolved]
  - Haemoptysis [Recovered/Resolved]
  - Weight increased [Unknown]
  - Blood bilirubin increased [Unknown]
  - Sinus disorder [Recovered/Resolved]
  - Ageusia [Recovered/Resolved]
  - Fatigue [Unknown]
  - Sputum increased [Unknown]
  - Weight decreased [Unknown]
  - Infective pulmonary exacerbation of cystic fibrosis [Recovered/Resolved]
  - Pneumonia [Recovered/Resolved]
  - Prothrombin level increased [Unknown]
  - Haemoglobin decreased [Unknown]
  - Cough [Not Recovered/Not Resolved]
  - Oropharyngeal pain [Recovered/Resolved]
  - Blood glucose increased [Unknown]
  - Red cell distribution width increased [Unknown]
  - Bronchial wall thickening [Unknown]
  - Infective pulmonary exacerbation of cystic fibrosis [Recovered/Resolved]
  - Infective pulmonary exacerbation of cystic fibrosis [Recovered/Resolved]
  - Infective pulmonary exacerbation of cystic fibrosis [Recovered/Resolved]
  - Infective pulmonary exacerbation of cystic fibrosis [Recovered/Resolved]
  - Cystic fibrosis lung [Recovered/Resolved]
  - International normalised ratio increased [Unknown]
  - Microcytic anaemia [Unknown]
  - Anosmia [Recovered/Resolved]
  - Infective pulmonary exacerbation of cystic fibrosis [Recovered/Resolved]
  - Pneumonia [Recovered/Resolved]
  - Bronchiectasis [Recovered/Resolved]
  - Gamma-glutamyltransferase increased [Unknown]
  - Chest pain [Recovered/Resolved]
  - Dyspnoea [Unknown]
  - Vitamin D decreased [Unknown]
  - Mean cell haemoglobin decreased [Unknown]
  - Haemoptysis [Unknown]
  - Decreased appetite [Unknown]
  - Pneumonia [Recovered/Resolved]
  - Pneumonia pseudomonal [Recovered/Resolved]
  - Forced expiratory volume decreased [Unknown]
  - Haematocrit decreased [Unknown]
  - Mean cell volume decreased [Unknown]
  - Urticaria [Recovered/Resolved]

NARRATIVE: CASE EVENT DATE: 20160105
